FAERS Safety Report 6033145-3 (Version None)
Quarter: 2008Q4

REPORT INFORMATION
  Report Type: 
  Country: None (occurrence: None)
  Receive Date: 20081224
  Receipt Date: 20081105
  Transmission Date: 20090506
  Serious: No
  Sender: FDA-Public Use
  Company Number: 2008PV037054

PATIENT
  Age: 74 Year
  Sex: Female

DRUGS (4)
  1. SYMLIN [Suspect]
     Indication: TYPE 2 DIABETES MELLITUS
     Dosage: 120 MCG;TID;SC; 60 MCG;TID;SC
     Route: 058
     Dates: start: 20081001, end: 20081005
  2. SYMLIN [Suspect]
     Indication: TYPE 2 DIABETES MELLITUS
     Dosage: 120 MCG;TID;SC; 60 MCG;TID;SC
     Route: 058
     Dates: start: 20081005
  3. HUMALOG [Concomitant]
  4. LANTUS [Concomitant]

REACTIONS (9)
  - BLOOD GLUCOSE DECREASED [None]
  - BLOOD GLUCOSE INCREASED [None]
  - DRUG EFFECT DECREASED [None]
  - DYSPHONIA [None]
  - FATIGUE [None]
  - INCORRECT DOSE ADMINISTERED [None]
  - INFECTION [None]
  - MALAISE [None]
  - NAUSEA [None]
